FAERS Safety Report 7694505-8 (Version None)
Quarter: 2011Q3

REPORT INFORMATION
  Report Type: 
  Country: None (occurrence: None)
  Receive Date: 20110819
  Receipt Date: 20110808
  Transmission Date: 20111222
  Serious: Yes (Hospitalization)
  Sender: FDA-Public Use
  Company Number: PHHY2011US57532

PATIENT
  Sex: Female
  Weight: 92 kg

DRUGS (11)
  1. BENADRYL [Concomitant]
     Dosage: 25 MG, PRN
  2. LEXAPRO [Concomitant]
     Dosage: 10 MG, DAILY
  3. FERROUS SULFATE TAB [Concomitant]
     Dosage: 325 MG, DAILY
  4. SYNTHROID [Concomitant]
     Dosage: 75 UG, DAILY
  5. CALCITRIOL [Concomitant]
     Dosage: 0.25 MG, DAILY
  6. METOPROLOL SUCCINATE [Concomitant]
     Dosage: 25 MG, BID
  7. COLON CLEANSE [Concomitant]
  8. LORTAB [Concomitant]
     Indication: PAIN
     Dosage: 7.5 MG, PRN
  9. AFINITOR [Suspect]
     Indication: RENAL CELL CARCINOMA
     Dosage: 10 MG, DAILY
     Route: 048
     Dates: start: 20110201, end: 20110601
  10. NEXIUM [Concomitant]
     Dosage: 40 MG, DAILY
  11. XANAX [Concomitant]
     Dosage: 0.25 MG, BID

REACTIONS (13)
  - COLITIS ISCHAEMIC [None]
  - TOXICITY TO VARIOUS AGENTS [None]
  - ANAEMIA [None]
  - INFREQUENT BOWEL MOVEMENTS [None]
  - GASTROINTESTINAL HAEMORRHAGE [None]
  - COLD SWEAT [None]
  - VOMITING [None]
  - BLOOD PRESSURE SYSTOLIC INCREASED [None]
  - HAEMATOCHEZIA [None]
  - DIARRHOEA [None]
  - ABDOMINAL PAIN [None]
  - FLUSHING [None]
  - FREQUENT BOWEL MOVEMENTS [None]
